FAERS Safety Report 5177310-6 (Version None)
Quarter: 2006Q4

REPORT INFORMATION
  Report Type: 
  Country: None (occurrence: None)
  Receive Date: 20061218
  Receipt Date: 20060720
  Transmission Date: 20070319
  Serious: No
  Sender: FDA-Public Use
  Company Number: US-AMGEN-KDL187204

PATIENT
  Sex: Female

DRUGS (2)
  1. ENBREL [Suspect]
     Indication: ANKYLOSING SPONDYLITIS
     Route: 058
     Dates: start: 20050701
  2. SULFASALAZINE [Concomitant]
     Dates: start: 20060601

REACTIONS (4)
  - NASAL DISCOMFORT [None]
  - NASOPHARYNGITIS [None]
  - PALATAL DISORDER [None]
  - SCAR [None]
